FAERS Safety Report 23447691 (Version 1)
Quarter: 2024Q1

REPORT INFORMATION
  Report Type: Spontaneous
  Country: US (occurrence: None)
  Receive Date: 20240126
  Receipt Date: 20240126
  Transmission Date: 20240410
  Serious: Yes (Other)
  Sender: FDA-Public Use
  Company Number: None

PATIENT
  Age: 32 Year
  Sex: Female

DRUGS (2)
  1. PRIVIGEN [Suspect]
     Active Substance: HUMAN IMMUNOGLOBULIN G
     Indication: Systemic scleroderma
     Dosage: 5 G GRAM (S) 5DAYS SPACED/MONTH INTRAVENOUS
     Route: 042
     Dates: start: 20240124, end: 20240124
  2. PRIVIGEN [Suspect]
     Active Substance: HUMAN IMMUNOGLOBULIN G
     Indication: Polyneuropathy

REACTIONS (5)
  - Infusion related reaction [None]
  - Headache [None]
  - Pain [None]
  - Spinal pain [None]
  - Fatigue [None]

NARRATIVE: CASE EVENT DATE: 20240124
